FAERS Safety Report 7358998-8 (Version None)
Quarter: 2011Q1

REPORT INFORMATION
  Report Type: 
  Country: None (occurrence: None)
  Receive Date: 20110317
  Receipt Date: 20100908
  Transmission Date: 20110831
  Serious: Yes (Other)
  Sender: FDA-Public Use
  Company Number: US-BAYER-200943725NA

PATIENT
  Sex: Female
  Weight: 63.492 kg

DRUGS (10)
  1. YASMIN [Suspect]
     Indication: ORAL CONTRACEPTION
     Dosage: UNK
     Dates: start: 20070101, end: 20080101
  2. ADVIL LIQUI-GELS [Concomitant]
     Indication: MUSCLE SPASMS
  3. UNCODEABLE ^UNCLASSIFIABLE^ [Concomitant]
     Indication: MUSCLE SPASMS
  4. ADVIL LIQUI-GELS [Concomitant]
     Indication: PAIN
  5. ADVIL LIQUI-GELS [Concomitant]
     Indication: HEADACHE
  6. MOTRIN [Concomitant]
     Indication: PAIN
  7. MOTRIN [Concomitant]
     Indication: MUSCLE SPASMS
  8. UNCODEABLE ^UNCLASSIFIABLE^ [Concomitant]
     Indication: HEADACHE
  9. UNCODEABLE ^UNCLASSIFIABLE^ [Concomitant]
     Indication: PAIN
  10. MOTRIN [Concomitant]
     Indication: HEADACHE

REACTIONS (1)
  - DEEP VEIN THROMBOSIS [None]
